FAERS Safety Report 5506695-3 (Version None)
Quarter: 2007Q4

REPORT INFORMATION
  Report Type: 
  Country: None (occurrence: None)
  Receive Date: 20071105
  Receipt Date: 20071101
  Transmission Date: 20080405
  Serious: Yes (Death, Hospitalization)
  Sender: FDA-Public Use
  Company Number: US-BRISTOL-MYERS SQUIBB COMPANY-13967799

PATIENT
  Age: 60 Year
  Sex: Male
  Weight: 57 kg

DRUGS (4)
  1. CETUXIMAB [Suspect]
     Indication: NON-SMALL CELL LUNG CANCER
     Dosage: 400 MG/M2 IV OVER 2 HRS ON WEEK 1, CYCLE 1 ONLY, 250 MG/M2 IV OVER 2 HRS ON WEEK 2
     Route: 042
     Dates: start: 20071010, end: 20071010
  2. CARBOPLATIN [Suspect]
     Indication: NON-SMALL CELL LUNG CANCER
     Dosage: FIRST COURSE ON 12-SEP-2007, AUC 6 IV OVER 30 MIN Q 21 DAYS STARTING WEEK 1
     Route: 042
     Dates: start: 20071003, end: 20071003
  3. PACLITAXEL [Suspect]
     Indication: NON-SMALL CELL LUNG CANCER
     Dosage: 200 MG/M2 IV OVER 3 HRS Q 21 DAYS STARTNG WEEK 1
     Route: 042
     Dates: start: 20071003, end: 20071003
  4. BEVACIZUMAB [Suspect]
     Indication: NON-SMALL CELL LUNG CANCER
     Dosage: 15 MG/KG IV OVER 90-30 MIN, Q 21 DAYS
     Route: 042
     Dates: start: 20071003, end: 20071003

REACTIONS (5)
  - CHILLS [None]
  - DEATH [None]
  - DYSPNOEA [None]
  - HYPERTENSION [None]
  - SINUS TACHYCARDIA [None]
